FAERS Safety Report 15496758 (Version 1)
Quarter: 2018Q4

REPORT INFORMATION
  Report Type: Spontaneous
  Country: AU (occurrence: AU)
  Receive Date: 20181014
  Receipt Date: 20181014
  Transmission Date: 20190205
  Serious: Yes (Death, Congenital Anomaly, Other)
  Sender: FDA-Public Use
  Company Number: PHHY2018AU123349

PATIENT

DRUGS (2)
  1. OCTREOTIDE. [Suspect]
     Active Substance: OCTREOTIDE
     Indication: ASCITES
     Dosage: 10 UG/KG, QH
     Route: 042
  2. OCTREOTIDE. [Suspect]
     Active Substance: OCTREOTIDE
     Indication: CHYLOTHORAX
     Dosage: 1 UG/KG, QH
     Route: 042

REACTIONS (13)
  - Cryptorchism [Unknown]
  - Pneumothorax [Unknown]
  - Hyperglycaemia [Fatal]
  - Arrhythmia [Unknown]
  - Anaemia [Unknown]
  - Blood thyroid stimulating hormone decreased [Fatal]
  - Congenital multiplex arthrogryposis [Unknown]
  - Therapeutic response decreased [Unknown]
  - Premature baby [Unknown]
  - Sepsis [Unknown]
  - Benign congenital hypotonia [Unknown]
  - Patent ductus arteriosus [Unknown]
  - Neonatal respiratory distress syndrome [Unknown]
